FAERS Safety Report 14497921 (Version 1)
Quarter: 2018Q1

REPORT INFORMATION
  Report Type: Spontaneous
  Country: FR (occurrence: FR)
  Receive Date: 20180207
  Receipt Date: 20180207
  Transmission Date: 20180509
  Serious: Yes (Other)
  Sender: FDA-Public Use
  Company Number: FR-PFIZER INC-2018047006

PATIENT
  Age: 42 Year
  Sex: Female
  Weight: 55 kg

DRUGS (2)
  1. CARBOPLATIN. [Suspect]
     Active Substance: CARBOPLATIN
     Indication: OVARIAN CANCER
     Dosage: 470 MG, UNK
     Route: 042
     Dates: start: 20160526, end: 20160526
  2. PACLITAXEL. [Suspect]
     Active Substance: PACLITAXEL
     Indication: OVARIAN CANCER
     Dosage: 280 MG, UNK
     Route: 042
     Dates: start: 20160526

REACTIONS (1)
  - Distal intestinal obstruction syndrome [Recovered/Resolved]

NARRATIVE: CASE EVENT DATE: 20170607
